FAERS Safety Report 16833027 (Version 1)
Quarter: 2019Q3

REPORT INFORMATION
  Report Type: Spontaneous
  Country: US (occurrence: US)
  Receive Date: 20190920
  Receipt Date: 20190920
  Transmission Date: 20191005
  Serious: Yes (Other)
  Sender: FDA-Public Use
  Company Number: US-FRESENIUS KABI-FK201910292

PATIENT
  Age: 81 Year
  Sex: Male

DRUGS (1)
  1. HEPARIN SODIUM INJECTION, USP [Suspect]
     Active Substance: HEPARIN SODIUM
     Indication: ANTICOAGULANT THERAPY
     Route: 042
     Dates: start: 20190917

REACTIONS (2)
  - Drug ineffective [Unknown]
  - Thrombosis in device [Unknown]

NARRATIVE: CASE EVENT DATE: 20190917
